FAERS Safety Report 20177090 (Version 1)
Quarter: 2021Q4

REPORT INFORMATION
  Report Type: Spontaneous
  Country: US (occurrence: None)
  Receive Date: 20211213
  Receipt Date: 20211213
  Transmission Date: 20220303
  Serious: Yes (Other)
  Sender: FDA-Public Use
  Company Number: None

PATIENT
  Age: 52 Year
  Sex: Male

DRUGS (1)
  1. HUMIRA [Suspect]
     Active Substance: ADALIMUMAB
     Route: 058
     Dates: start: 202103, end: 202111

REACTIONS (5)
  - Arthralgia [None]
  - Feeling abnormal [None]
  - Dizziness [None]
  - Fall [None]
  - Limb injury [None]

NARRATIVE: CASE EVENT DATE: 20211204
